FAERS Safety Report 4418510-X (Version None)
Quarter: 2004Q3

REPORT INFORMATION
  Report Type: 
  Country: None (occurrence: None)
  Receive Date: 20040809
  Receipt Date: 20040517
  Transmission Date: 20050211
  Serious: No
  Sender: FDA-Public Use
  Company Number: US-GLAXOSMITHKLINE-A0511115A

PATIENT
  Sex: Female

DRUGS (3)
  1. PAXIL CR [Suspect]
     Route: 048
     Dates: start: 20040503
  2. XANAX [Concomitant]
  3. VERAPAMIL [Concomitant]

REACTIONS (2)
  - BURNING SENSATION [None]
  - CHEST PAIN [None]
